FAERS Safety Report 8861516 (Version 1)
Quarter: 2012Q4

REPORT INFORMATION
  Report Type: Spontaneous
  Country: US (occurrence: None)
  Receive Date: 20121025
  Receipt Date: 20121025
  Transmission Date: 20130627
  Serious: Yes (Hospitalization, Other)
  Sender: FDA-Public Use
  Company Number: None

PATIENT
  Age: 52 Year
  Sex: Female

DRUGS (1)
  1. TORADOL [Suspect]
     Dosage: every 3-4 hours
     Route: 042
     Dates: start: 20120521, end: 20120522

REACTIONS (1)
  - Renal failure acute [None]
